FAERS Safety Report 9769597 (Version 1)
Quarter: 2013Q4

REPORT INFORMATION
  Report Type: Spontaneous
  Country: GB (occurrence: GB)
  Receive Date: 20131218
  Receipt Date: 20131218
  Transmission Date: 20140711
  Serious: Yes (Other)
  Sender: FDA-Public Use
  Company Number: GB-009507513-1312GBR007402

PATIENT
  Age: 27 Year
  Sex: Female
  Weight: 81.2 kg

DRUGS (1)
  1. NEXPLANON [Suspect]
     Indication: CONTRACEPTION
     Dosage: 68MG
     Route: 059
     Dates: start: 201204, end: 20131203

REACTIONS (4)
  - Skin hyperpigmentation [Unknown]
  - Skin reaction [Unknown]
  - Device breakage [Unknown]
  - Pruritus [Unknown]
